FAERS Safety Report 5196309-7 (Version None)
Quarter: 2006Q4

REPORT INFORMATION
  Report Type: 
  Country: None (occurrence: None)
  Receive Date: 20061222
  Receipt Date: 20061208
  Transmission Date: 20070319
  Serious: Yes (Hospitalization, Other)
  Sender: FDA-Public Use
  Company Number: 2006151514

PATIENT
  Sex: Male

DRUGS (1)
  1. SUTENT [Suspect]
     Indication: RENAL CELL CARCINOMA STAGE UNSPECIFIED
     Dosage: ORAL
     Route: 048
     Dates: start: 20061101

REACTIONS (12)
  - DISEASE PROGRESSION [None]
  - DRUG TOXICITY [None]
  - DRY MOUTH [None]
  - DYSGEUSIA [None]
  - ERYTHEMA [None]
  - HAEMOPTYSIS [None]
  - METASTASES TO LUNG [None]
  - MUCOUS MEMBRANE DISORDER [None]
  - NEOPLASM PROGRESSION [None]
  - ORAL INTAKE REDUCED [None]
  - PNEUMONIA [None]
  - WHITE BLOOD CELL COUNT DECREASED [None]
